FAERS Safety Report 11831883 (Version 1)
Quarter: 2015Q4

REPORT INFORMATION
  Report Type: Spontaneous
  Country: US (occurrence: US)
  Receive Date: 20151214
  Receipt Date: 20151214
  Transmission Date: 20160305
  Serious: Yes (Death)
  Sender: FDA-Public Use
  Company Number: US-ASTRAZENECA-2015SF21574

PATIENT
  Age: 51 Year
  Sex: Male

DRUGS (1)
  1. BRILINTA [Suspect]
     Active Substance: TICAGRELOR
     Indication: STENT PLACEMENT
     Route: 048
     Dates: start: 201503

REACTIONS (5)
  - Adverse event [Unknown]
  - Nervous system disorder [Unknown]
  - Treatment noncompliance [Unknown]
  - Coronary artery occlusion [Fatal]
  - Malaise [Unknown]

NARRATIVE: CASE EVENT DATE: 201511
